APPROVED DRUG PRODUCT: INTELENCE
Active Ingredient: ETRAVIRINE
Strength: 200MG
Dosage Form/Route: TABLET;ORAL
Application: N022187 | Product #002 | TE Code: AB
Applicant: JANSSEN RESEARCH AND DEVELOPMENT LLC
Approved: Dec 22, 2010 | RLD: Yes | RS: Yes | Type: RX